FAERS Safety Report 15801943 (Version 1)
Quarter: 2019Q1

REPORT INFORMATION
  Report Type: Spontaneous
  Country: GB (occurrence: GB)
  Receive Date: 20190109
  Receipt Date: 20190109
  Transmission Date: 20190417
  Serious: Yes (Other)
  Sender: FDA-Public Use
  Company Number: GB-ACCORD-101130

PATIENT
  Age: 65 Year
  Sex: Male
  Weight: 69.85 kg

DRUGS (4)
  1. AMLODIPINE [Suspect]
     Active Substance: AMLODIPINE BESYLATE
     Indication: HYPERTENSION
     Route: 048
     Dates: start: 20180223, end: 20180225
  2. NAPROXEN. [Concomitant]
     Active Substance: NAPROXEN
  3. SIMVASTATIN. [Concomitant]
     Active Substance: SIMVASTATIN
  4. OMEPRAZOLE. [Concomitant]
     Active Substance: OMEPRAZOLE

REACTIONS (3)
  - Erythema [Recovered/Resolved with Sequelae]
  - Pruritus [Recovered/Resolved with Sequelae]
  - Rash generalised [Recovered/Resolved with Sequelae]

NARRATIVE: CASE EVENT DATE: 20180223
